FAERS Safety Report 15772965 (Version 1)
Quarter: 2018Q4

REPORT INFORMATION
  Report Type: Report from Study
  Country: JP (occurrence: JP)
  Receive Date: 20181228
  Receipt Date: 20181228
  Transmission Date: 20190205
  Serious: Yes (Hospitalization, Other)
  Sender: FDA-Public Use
  Company Number: JP-BRISTOL-MYERS SQUIBB COMPANY-BMS-2018-119423

PATIENT
  Age: 53 Year
  Sex: Male
  Weight: 68.5 kg

DRUGS (9)
  1. APREPITANT. [Suspect]
     Active Substance: APREPITANT
     Indication: PROPHYLAXIS OF NAUSEA AND VOMITING
     Dosage: 125 MG, UNK
     Route: 048
     Dates: start: 20181128
  2. CARBOPLATIN. [Suspect]
     Active Substance: CARBOPLATIN
     Indication: NON-SMALL CELL LUNG CANCER
     Dosage: UNK, Q3WK
     Route: 042
     Dates: start: 20181128, end: 20181128
  3. GRANISETRON [Concomitant]
     Active Substance: GRANISETRON
     Indication: PROPHYLAXIS OF NAUSEA AND VOMITING
     Dosage: 1 MG, QD
     Route: 042
     Dates: start: 20181128
  4. NIVOLUMAB [Suspect]
     Active Substance: NIVOLUMAB
     Indication: NON-SMALL CELL LUNG CANCER
     Dosage: 360 MG, Q3WK
     Route: 042
     Dates: start: 20181128, end: 20181128
  5. BEVACIZUMAB. [Suspect]
     Active Substance: BEVACIZUMAB
     Indication: NON-SMALL CELL LUNG CANCER
     Dosage: 15 MG/KG, Q3WK
     Route: 042
     Dates: start: 20181128, end: 20181128
  6. AZILSARTAN [Suspect]
     Active Substance: AZILSARTAN KAMEDOXOMIL
     Indication: HEPATIC FUNCTION ABNORMAL
     Dosage: 20 MG, EVERY DAY
     Route: 048
     Dates: start: 20181130, end: 20181207
  7. PACLITAXEL. [Suspect]
     Active Substance: PACLITAXEL
     Indication: NON-SMALL CELL LUNG CANCER
     Dosage: 200 MG/M2, Q3WK
     Route: 042
     Dates: start: 20181128, end: 20181128
  8. DEXART [Concomitant]
     Active Substance: DEXAMETHASONE SODIUM PHOSPHATE
     Indication: PROPHYLAXIS OF NAUSEA AND VOMITING
     Dosage: UNK
     Route: 042
     Dates: start: 20181128
  9. RANITIDINE. [Concomitant]
     Active Substance: RANITIDINE
     Indication: PROPHYLAXIS OF NAUSEA AND VOMITING
     Dosage: 50 MG, QD
     Route: 042
     Dates: start: 20181128

REACTIONS (2)
  - Hepatic function abnormal [Recovered/Resolved]
  - Diverticulitis [Recovered/Resolved]

NARRATIVE: CASE EVENT DATE: 20181207
